FAERS Safety Report 8778205 (Version 3)
Quarter: 2013Q3

REPORT INFORMATION
  Report Type: Spontaneous
  Country: US (occurrence: US)
  Receive Date: 20120911
  Receipt Date: 20130928
  Transmission Date: 20140515
  Serious: Yes (Other)
  Sender: FDA-Public Use
  Company Number: US-BAYER-2012-093767

PATIENT
  Age: 40 Year
  Sex: Female
  Weight: 81.63 kg

DRUGS (11)
  1. YAZ [Suspect]
     Indication: MENSTRUAL CYCLE MANAGEMENT
     Dosage: UNK
     Dates: start: 200803, end: 201005
  2. YAZ [Suspect]
     Indication: CONTRACEPTION
     Dosage: UNK
     Dates: start: 20080801, end: 201006
  3. YAZ [Suspect]
     Indication: PREMENSTRUAL DYSPHORIC DISORDER
  4. YAZ [Suspect]
     Indication: PREMENSTRUAL SYNDROME
  5. GIANVI [Suspect]
     Indication: CONTRACEPTION
     Dosage: UNK
     Dates: start: 200803
  6. GIANVI [Suspect]
     Indication: PREMENSTRUAL DYSPHORIC DISORDER
     Dosage: UNK
     Dates: start: 20100622, end: 201007
  7. GIANVI [Suspect]
     Indication: PREMENSTRUAL SYNDROME
  8. IBUPROFEN [Concomitant]
     Dosage: 800 MG, UNK
  9. LORAZEPAM [Concomitant]
     Dosage: 0.5 MG, UNK
  10. HYDROCODONE W/APAP [Concomitant]
     Dosage: 5-325
  11. MECLIZINE [Concomitant]
     Dosage: 25 MG, UNK

REACTIONS (6)
  - Pulmonary embolism [None]
  - Injury [None]
  - Pain [None]
  - Emotional distress [None]
  - Anxiety [None]
  - Psychological trauma [None]
